FAERS Safety Report 10373210 (Version 2)
Quarter: 2014Q3

REPORT INFORMATION
  Report Type: Spontaneous
  Country: US (occurrence: US)
  Receive Date: 20140808
  Receipt Date: 20140808
  Transmission Date: 20150326
  Serious: No
  Sender: FDA-Public Use
  Company Number: US-BRISTOL-MYERS SQUIBB COMPANY-20191383

PATIENT
  Age: 42 Year
  Sex: Female

DRUGS (1)
  1. SPRYCEL [Suspect]
     Active Substance: DASATINIB
     Indication: CHRONIC MYELOID LEUKAEMIA
     Route: 048
     Dates: start: 201308

REACTIONS (9)
  - Nausea [Unknown]
  - Rash [Unknown]
  - Asthenia [Recovering/Resolving]
  - Alopecia [Unknown]
  - Drug dose omission [Unknown]
  - Decreased appetite [Recovering/Resolving]
  - Pain [Recovering/Resolving]
  - Fatigue [Recovering/Resolving]
  - Myalgia [Unknown]
